FAERS Safety Report 19157583 (Version 1)
Quarter: 2021Q2

REPORT INFORMATION
  Report Type: Spontaneous
  Country: JP (occurrence: JP)
  Receive Date: 20210420
  Receipt Date: 20210420
  Transmission Date: 20210717
  Serious: Yes (Other)
  Sender: FDA-Public Use
  Company Number: JP-MYLANLABS-2021M1020852

PATIENT
  Age: 73 Year
  Sex: Female

DRUGS (9)
  1. CARBOPLATIN INJ. 50MG ^NK^ [Suspect]
     Active Substance: CARBOPLATIN
     Dosage: 250 MILLIGRAM
     Route: 041
     Dates: start: 20210303
  2. LASTET [Suspect]
     Active Substance: ETOPOSIDE
     Indication: NEUROENDOCRINE CARCINOMA
     Dosage: 110 MILLIGRAM, QD
     Route: 041
     Dates: start: 20210208, end: 20210210
  3. CARBOPLATIN INJ. 50MG ^NK^ [Suspect]
     Active Substance: CARBOPLATIN
     Indication: NEUROENDOCRINE CARCINOMA
     Dosage: 250 MILLIGRAM
     Route: 041
     Dates: start: 20210208
  4. TECENTRIQ [Suspect]
     Active Substance: ATEZOLIZUMAB
     Dosage: 1200 MILLIGRAM
     Route: 041
     Dates: start: 20210303
  5. CARBOPLATIN INJ. 50MG ^NK^ [Suspect]
     Active Substance: CARBOPLATIN
     Dosage: UNK MILLIGRAM
     Route: 041
  6. LASTET [Suspect]
     Active Substance: ETOPOSIDE
     Dosage: UNK
     Route: 041
  7. TECENTRIQ [Suspect]
     Active Substance: ATEZOLIZUMAB
     Indication: NEUROENDOCRINE CARCINOMA
     Dosage: 1200 MILLIGRAM
     Route: 041
     Dates: start: 20210208
  8. TECENTRIQ [Suspect]
     Active Substance: ATEZOLIZUMAB
     Dosage: UNK
     Route: 041
  9. LASTET [Suspect]
     Active Substance: ETOPOSIDE
     Dosage: 110 MILLIGRAM, QD
     Route: 041
     Dates: start: 20210303, end: 20210305

REACTIONS (2)
  - Off label use [Unknown]
  - Neutrophil count decreased [Recovered/Resolved]

NARRATIVE: CASE EVENT DATE: 20210222
